FAERS Safety Report 11982749 (Version 1)
Quarter: 2016Q1

REPORT INFORMATION
  Report Type: Spontaneous
  Country: US (occurrence: US)
  Receive Date: 20160201
  Receipt Date: 20160201
  Transmission Date: 20160526
  Serious: Yes (Hospitalization, Other)
  Sender: FDA-Public Use
  Company Number: US-BAYER-2016-017276

PATIENT
  Age: 61 Year
  Sex: Female

DRUGS (5)
  1. NAPROXEN SODIUM ({= 220 MG) [Suspect]
     Active Substance: NAPROXEN SODIUM
     Indication: PAIN MANAGEMENT
     Dosage: 250 MG, UNK
  2. CYCLOBENZAPRINE [Suspect]
     Active Substance: CYCLOBENZAPRINE
     Indication: CERVICAL RADICULOPATHY
     Dosage: UNK
  3. NAPROXEN SODIUM ({= 220 MG) [Suspect]
     Active Substance: NAPROXEN SODIUM
     Indication: CERVICAL RADICULOPATHY
     Dosage: 100 MG, QD
  4. ASPIRIN. [Concomitant]
     Active Substance: ASPIRIN
     Dosage: UNK UNK, QD
  5. IBUPROFEN. [Concomitant]
     Active Substance: IBUPROFEN
     Dosage: UNK UNK, PRN

REACTIONS (7)
  - C-reactive protein increased [Recovered/Resolved]
  - Serum sickness-like reaction [Recovered/Resolved]
  - Headache [Recovered/Resolved]
  - Polyarthritis [Recovered/Resolved]
  - Musculoskeletal stiffness [Recovered/Resolved]
  - Pyrexia [Recovered/Resolved]
  - Myalgia [Recovered/Resolved]
